FAERS Safety Report 8076322-2 (Version None)
Quarter: 2012Q1

REPORT INFORMATION
  Report Type: 
  Country: None (occurrence: None)
  Receive Date: 20120127
  Receipt Date: 20120120
  Transmission Date: 20120608
  Serious: Yes (Other)
  Sender: FDA-Public Use
  Company Number: US-ROXANE LABORATORIES, INC.-2012-RO-00517RO

PATIENT
  Sex: Male
  Weight: 90 kg

DRUGS (11)
  1. PROVENGE [Suspect]
     Indication: PROSTATE CANCER METASTATIC
     Dosage: 250 ML
     Route: 042
     Dates: start: 20111209, end: 20111209
  2. SOLU-MEDROL [Suspect]
     Indication: HYPERSENSITIVITY
  3. NUCYNTA [Concomitant]
  4. HYDROCHLOROTHIAZIDE [Concomitant]
  5. PREDNISONE TAB [Suspect]
     Indication: HYPERSENSITIVITY
  6. MEGACE [Concomitant]
  7. ASPIRIN [Concomitant]
  8. LUPRON [Concomitant]
  9. LISINOPRIL [Concomitant]
  10. SIMVASTATIN [Concomitant]
  11. DENOSUMAB [Concomitant]

REACTIONS (2)
  - FATIGUE [None]
  - LEUKOCYTOSIS [None]
